FAERS Safety Report 13713146 (Version 1)
Quarter: 2017Q3

REPORT INFORMATION
  Report Type: Spontaneous
  Country: US (occurrence: US)
  Receive Date: 20170704
  Receipt Date: 20170704
  Transmission Date: 20171127
  Serious: Yes (Hospitalization)
  Sender: FDA-Public Use
  Company Number: US-BAXTER-2017BAX026469

PATIENT
  Age: 55 Year
  Sex: Female

DRUGS (4)
  1. IFEX [Suspect]
     Active Substance: IFOSFAMIDE
     Indication: MYXOID LIPOSARCOMA
  2. DOXORUBICIN [Suspect]
     Active Substance: DOXORUBICIN
     Indication: LIPOSARCOMA RECURRENT
     Route: 065
     Dates: start: 2006
  3. IFEX [Suspect]
     Active Substance: IFOSFAMIDE
     Indication: LIPOSARCOMA RECURRENT
     Route: 065
     Dates: start: 2006
  4. DOXORUBICIN [Suspect]
     Active Substance: DOXORUBICIN
     Indication: MYXOID LIPOSARCOMA

REACTIONS (2)
  - Telangiectasia [Recovered/Resolved]
  - Lividity [Recovered/Resolved]
